FAERS Safety Report 12993290 (Version 4)
Quarter: 2017Q2

REPORT INFORMATION
  Report Type: Report from Study
  Country: GB (occurrence: GB)
  Receive Date: 20161202
  Receipt Date: 20170612
  Transmission Date: 20170830
  Serious: Yes (Hospitalization)
  Sender: FDA-Public Use
  Company Number: GB-TEVA-691209ACC

PATIENT
  Age: 78 Year
  Sex: Female
  Weight: 52 kg

DRUGS (16)
  1. ACICLOVIR [Concomitant]
     Active Substance: ACYCLOVIR
     Indication: CHRONIC LYMPHOCYTIC LEUKAEMIA
     Dosage: 400 MG, (PER PROTOCOL)
     Route: 048
     Dates: start: 20160824
  2. COTRIMOXAZOLE [Concomitant]
     Active Substance: SULFAMETHOXAZOLE\TRIMETHOPRIM
     Indication: CHRONIC LYMPHOCYTIC LEUKAEMIA
     Dosage: 480 MG, (PER PROTOCOL)
     Route: 048
     Dates: start: 20160824, end: 20161018
  3. PARACETAMOL [Concomitant]
     Active Substance: ACETAMINOPHEN
     Indication: CHRONIC LYMPHOCYTIC LEUKAEMIA
     Dosage: 1 G, (PER PROTOCOL)
     Route: 048
     Dates: start: 20160824, end: 20161006
  4. PREDNISOLONE. [Concomitant]
     Active Substance: PREDNISOLONE
     Indication: ANGIOEDEMA
     Dosage: 30 MILLIGRAM DAILY;
     Route: 048
     Dates: start: 20161016
  5. BENDAMUSTINE HYDROCHLORIDE. [Suspect]
     Active Substance: BENDAMUSTINE HYDROCHLORIDE
     Dosage: 105 MG, CYCLIC (PER PROTOCOL)
     Route: 042
     Dates: end: 20161006
  6. BENDAMUSTINE HYDROCHLORIDE. [Suspect]
     Active Substance: BENDAMUSTINE HYDROCHLORIDE
     Indication: CHRONIC LYMPHOCYTIC LEUKAEMIA
     Dosage: 110 MG, CYCLIC (PER PROTOCOL)
     Route: 042
     Dates: start: 20160824
  7. CHLORPHENIRAMINE                   /00072501/ [Concomitant]
     Active Substance: CHLORPHENIRAMINE
     Indication: CHRONIC LYMPHOCYTIC LEUKAEMIA
     Dosage: 10 MG, (PER PROTOCOL)
     Route: 042
     Dates: start: 20160824, end: 20161005
  8. ALLOPURINOL. [Concomitant]
     Active Substance: ALLOPURINOL
     Indication: CHRONIC LYMPHOCYTIC LEUKAEMIA
     Dosage: 300 MG, UNKNOWN FREQ. (PER PROTOCOL)
     Route: 048
     Dates: start: 20160824, end: 20161018
  9. METOCLOPRAMIDE. [Concomitant]
     Active Substance: METOCLOPRAMIDE
     Indication: PRODUCT USED FOR UNKNOWN INDICATION
     Route: 065
  10. G-CSF [Concomitant]
     Active Substance: GRANULOCYTE COLONY-STIMULATING FACTOR NOS
     Indication: PRODUCT USED FOR UNKNOWN INDICATION
     Route: 065
     Dates: end: 20161018
  11. CETIRIZINE [Concomitant]
     Active Substance: CETIRIZINE HYDROCHLORIDE
     Indication: RASH
     Dosage: 20 MILLIGRAM DAILY;
     Route: 048
     Dates: start: 20160928
  12. HYDROCORTISONE. [Concomitant]
     Active Substance: HYDROCORTISONE
     Indication: CHRONIC LYMPHOCYTIC LEUKAEMIA
     Dosage: 100 MG, (PER PROTOCOL)
     Route: 042
     Dates: start: 20160824, end: 20161005
  13. OFATUMUMAB [Suspect]
     Active Substance: OFATUMUMAB
     Indication: CHRONIC LYMPHOCYTIC LEUKAEMIA
     Dosage: 1000 MG, CYCLIC (PER PROTOCOL)
     Route: 042
     Dates: start: 20160824, end: 20161005
  14. ONDANSETRON [Concomitant]
     Active Substance: ONDANSETRON
     Indication: CHRONIC LYMPHOCYTIC LEUKAEMIA
     Dosage: 8 MG, (PER PROTOCOL)
     Route: 048
     Dates: start: 20160824, end: 20161005
  15. CETIRIZINE [Concomitant]
     Active Substance: CETIRIZINE HYDROCHLORIDE
     Indication: ANGIOEDEMA
  16. PREDNISOLONE. [Concomitant]
     Active Substance: PREDNISOLONE
     Indication: RASH
     Dosage: 20 MILLIGRAM DAILY;
     Route: 048
     Dates: start: 20160928, end: 20161002

REACTIONS (6)
  - Platelet count decreased [Unknown]
  - Rash maculo-papular [Recovered/Resolved]
  - Erythema [Unknown]
  - Swelling face [Unknown]
  - Bronchitis [Recovered/Resolved]
  - Anaemia [Unknown]

NARRATIVE: CASE EVENT DATE: 20160831
